FAERS Safety Report 22141045 (Version 1)
Quarter: 2023Q1

REPORT INFORMATION
  Report Type: Spontaneous
  Country: US (occurrence: US)
  Receive Date: 20230327
  Receipt Date: 20230327
  Transmission Date: 20230417
  Serious: Yes (Other)
  Sender: FDA-Public Use
  Company Number: US-CORIUM, LLC-2023COR000030

PATIENT
  Age: 28 Year
  Sex: Male

DRUGS (1)
  1. AZSTARYS [Suspect]
     Active Substance: DEXMETHYLPHENIDATE HYDROCHLORIDE\SERDEXMETHYLPHENIDATE CHLORIDE
     Indication: Attention deficit hyperactivity disorder
     Dosage: 39.2 MG/7.8 MG
     Route: 048

REACTIONS (5)
  - Erection increased [Recovered/Resolved]
  - Migraine [Recovered/Resolved]
  - Myalgia [Recovered/Resolved]
  - Tremor [Recovered/Resolved]
  - Rash [Recovered/Resolved]
